FAERS Safety Report 8499119-8 (Version None)
Quarter: 2012Q2

REPORT INFORMATION
  Report Type: 
  Country: None (occurrence: None)
  Receive Date: 20120405
  Receipt Date: 20100326
  Transmission Date: 20120825
  Serious: Yes (Disabling)
  Sender: FDA-Public Use
  Company Number: PHHY2010US11384

PATIENT
  Sex: Female
  Weight: 65.8 kg

DRUGS (5)
  1. ATACAND [Concomitant]
  2. TOPRAL (SULTOPRIDE) [Concomitant]
  3. RECLAST (ZOLEDRFONATE) SOLUTION FOR INJECTION [Suspect]
     Indication: OSTEOPENIA
     Dosage: INJECTION NOS
     Dates: start: 20091217
  4. BONIVA [Concomitant]
  5. SYNTHROID [Concomitant]

REACTIONS (3)
  - INFLUENZA LIKE ILLNESS [None]
  - MUSCLE SPASMS [None]
  - BACK PAIN [None]
